FAERS Safety Report 5499443-7 (Version None)
Quarter: 2007Q4

REPORT INFORMATION
  Report Type: 
  Country: None (occurrence: None)
  Receive Date: 20071026
  Receipt Date: 20071009
  Transmission Date: 20080405
  Serious: Yes (Death)
  Sender: FDA-Public Use
  Company Number: US-ASTRAZENECA-2006UW24936

PATIENT
  Age: 17692 Day
  Sex: Female
  Weight: 61.4 kg

DRUGS (1)
  1. SEROQUEL [Suspect]
     Route: 048

REACTIONS (3)
  - ARTERIOSCLEROSIS [None]
  - DIABETES MELLITUS [None]
  - HYPERTENSIVE HEART DISEASE [None]
